FAERS Safety Report 8333931-0 (Version None)
Quarter: 2012Q2

REPORT INFORMATION
  Report Type: 
  Country: None (occurrence: None)
  Receive Date: 20120503
  Receipt Date: 20110318
  Transmission Date: 20120825
  Serious: Yes (Other)
  Sender: FDA-Public Use
  Company Number: US-TEVA-2011000443

PATIENT
  Sex: Female
  Weight: 61.744 kg

DRUGS (4)
  1. NUVIGIL [Suspect]
     Dosage: 250 MILLIGRAM;
     Route: 048
     Dates: start: 20110109
  2. STRATTERA [Suspect]
  3. LAMICTAL [Concomitant]
     Dates: start: 20100101
  4. BENAZEPRILL-HCTZ [Concomitant]
     Dates: start: 20000101

REACTIONS (2)
  - VOMITING [None]
  - HEADACHE [None]
